FAERS Safety Report 18129676 (Version 1)
Quarter: 2020Q3

REPORT INFORMATION
  Report Type: Spontaneous
  Country: US (occurrence: US)
  Receive Date: 20200810
  Receipt Date: 20200810
  Transmission Date: 20201103
  Serious: No
  Sender: FDA-Public Use
  Company Number: US-PERRIGO-19US011275

PATIENT
  Sex: Female

DRUGS (1)
  1. LORATADINE. [Suspect]
     Active Substance: LORATADINE
     Indication: HYPERSENSITIVITY
     Dosage: UNKNOWN, UNKNOWN
     Route: 048
     Dates: start: 20190912

REACTIONS (5)
  - Condition aggravated [Unknown]
  - Insomnia [Unknown]
  - Oropharyngeal pain [Unknown]
  - Oral pain [Unknown]
  - Eye pain [Unknown]

NARRATIVE: CASE EVENT DATE: 20190912
